FAERS Safety Report 6532121-1 (Version None)
Quarter: 2010Q1

REPORT INFORMATION
  Report Type: 
  Country: None (occurrence: None)
  Receive Date: 20100108
  Receipt Date: 20091229
  Transmission Date: 20100710
  Serious: Yes (Other)
  Sender: FDA-Public Use
  Company Number: US-AMGEN-QUU383025

PATIENT
  Sex: Female
  Weight: 62.7 kg

DRUGS (8)
  1. NEULASTA [Suspect]
     Indication: CHEMOTHERAPY
     Route: 065
     Dates: start: 20090921
  2. ADRIAMYCIN PFS [Concomitant]
  3. DEXAMETHASONE [Concomitant]
  4. TAXOTERE [Concomitant]
  5. LIPITOR [Concomitant]
  6. NEXIUM [Concomitant]
  7. ATENOLOL [Concomitant]
  8. CYCLOPHOSPHAMIDE [Concomitant]

REACTIONS (7)
  - BACK PAIN [None]
  - BONE PAIN [None]
  - CONSTIPATION [None]
  - HYPOTENSION [None]
  - MYALGIA [None]
  - NAUSEA [None]
  - WHITE BLOOD CELL COUNT INCREASED [None]
